FAERS Safety Report 8935769 (Version 1)
Quarter: 2012Q4

REPORT INFORMATION
  Report Type: 
  Country: JP (occurrence: JP)
  Receive Date: 20121130
  Receipt Date: 20121130
  Transmission Date: 20130627
  Serious: Yes (Life-Threatening)
  Sender: FDA-Public Use
  Company Number: JP-ASTELLAS-2012US011447

PATIENT
  Age: 84 Year
  Sex: Male
  Weight: 55 kg

DRUGS (21)
  1. TARCEVA [Suspect]
     Indication: LUNG ADENOCARCINOMA
     Dosage: 50 mg, qod
     Route: 048
     Dates: start: 20120727, end: 20120810
  2. AMOXAN [Suspect]
     Indication: CANCER PAIN
     Dosage: 25 mg, UID/QD
     Route: 048
     Dates: start: 20120808, end: 20120809
  3. ROCALTROL [Suspect]
     Indication: METASTASES TO BONE
     Dosage: 0.25 ug, UID/QD
     Route: 048
     Dates: start: 20120802
  4. DENOSUMAB [Suspect]
     Indication: METASTASES TO BONE
     Dosage: 120 mg, UID/QD
     Route: 058
     Dates: start: 20120802
  5. CALCIUM LACTATE [Suspect]
     Indication: METASTASES TO BONE
     Dosage: 1 g, bid
     Route: 048
     Dates: start: 20120802
  6. CALONAL [Suspect]
     Indication: CANCER PAIN
     Dosage: 400 mg, tid
     Route: 048
     Dates: start: 20120728
  7. SELBEX [Suspect]
     Indication: GASTRITIS
     Dosage: 50 mg, tid
     Route: 048
     Dates: start: 20120727
  8. OXYCONTIN [Concomitant]
     Indication: CANCER PAIN
     Dosage: 10 mg, bid
     Route: 065
     Dates: start: 201206
  9. OXINORM                            /00045603/ [Concomitant]
     Indication: CANCER PAIN
     Dosage: 10 mg, bid
     Route: 048
     Dates: start: 201206
  10. NOVAMIN                            /00013301/ [Concomitant]
     Indication: CANCER PAIN
     Dosage: 5 mg, UID/QD, single use
     Route: 065
     Dates: start: 201206
  11. MAGLAX [Concomitant]
     Indication: CANCER PAIN
     Dosage: 250 mg, tid
     Route: 065
     Dates: start: 201206
  12. ITOROL [Concomitant]
     Indication: HYPERTENSION
     Dosage: 20 mg, UID/QD
     Route: 065
     Dates: start: 20080806
  13. PLAVIX [Concomitant]
     Indication: MYOCARDIAL INFARCTION
     Dosage: 75 mg, UID/QD
     Route: 065
     Dates: start: 20100522
  14. OMEPRAL /00661201/ [Concomitant]
     Indication: GASTRITIS
     Dosage: 50 mg, UID/QD
     Route: 065
     Dates: start: 20100518
  15. MUCOSOLVAN [Concomitant]
     Indication: CHRONIC OBSTRUCTIVE PULMONARY DISEASE
     Dosage: 15 mg, tid
     Route: 065
     Dates: start: 20090224
  16. BLOPRESS [Concomitant]
     Indication: HYPERTENSION
     Dosage: 12 mg, UID/QD
     Route: 065
  17. RENIVACE [Concomitant]
     Indication: HYPERTENSION
     Dosage: 5 mg, UID/QD
     Route: 065
  18. BAYASPIRIN [Concomitant]
     Indication: MYOCARDIAL INFARCTION
     Dosage: 100 mg, UID/QD
     Route: 065
  19. ATELEC [Concomitant]
     Indication: HYPERTENSION
     Dosage: 20 mg, UID/QD
     Route: 065
  20. LIPOVAS                            /00848101/ [Concomitant]
     Indication: HYPERLIPIDAEMIA
     Dosage: 5 mg, UID/QD
     Route: 065
  21. FENOFIBRATE [Concomitant]
     Indication: PRODUCT USED FOR UNKNOWN INDICATION
     Dosage: UNK
     Route: 065

REACTIONS (3)
  - Incorrect dose administered [Unknown]
  - Rhabdomyolysis [Recovered/Resolved]
  - Malaise [Unknown]
